FAERS Safety Report 8958257 (Version 1)
Quarter: 2012Q4

REPORT INFORMATION
  Report Type: Report from Study
  Country: DE (occurrence: DE)
  Receive Date: 20121211
  Receipt Date: 20121211
  Transmission Date: 20130627
  Serious: Yes (Hospitalization)
  Sender: FDA-Public Use
  Company Number: DE-BAYER-2012-118317

PATIENT
  Age: 70 Year
  Sex: Male
  Weight: 60 kg

DRUGS (6)
  1. SORAFENIB (RAF KINASE INHIBITOR) [Suspect]
     Indication: HEPATOCELLULAR CARCINOMA NON-RESECTABLE
     Dosage: Daily dose 800 mg
     Route: 048
     Dates: start: 20120705, end: 20120805
  2. SORAFENIB (RAF KINASE INHIBITOR) [Suspect]
     Indication: HEPATOCELLULAR CARCINOMA NON-RESECTABLE
     Dosage: Daily dose 400 mg
     Route: 048
     Dates: start: 20120802, end: 20120805
  3. SORAFENIB (RAF KINASE INHIBITOR) [Suspect]
     Indication: HEPATOCELLULAR CARCINOMA NON-RESECTABLE
     Dosage: daily dose 0 mg
     Dates: start: 20120727, end: 20120801
  4. PRIMOVIST [Suspect]
     Indication: HEPATOCELLULAR CARCINOMA NON-RESECTABLE
     Dosage: UNK
     Route: 042
     Dates: start: 20120530, end: 20120530
  5. RAMIPRIL [Concomitant]
     Indication: HYPERTENSION
     Dosage: Daily dose 5 mg
     Route: 048
     Dates: start: 2005
  6. METOPROLOL [Concomitant]
     Indication: HYPERTENSION
     Dosage: Daily dose 100 mg
     Route: 048
     Dates: start: 2009

REACTIONS (1)
  - Hepatic encephalopathy [Recovered/Resolved]
